FAERS Safety Report 10552176 (Version 5)
Quarter: 2015Q1

REPORT INFORMATION
  Report Type: Spontaneous
  Country: US (occurrence: US)
  Receive Date: 20141029
  Receipt Date: 20150318
  Transmission Date: 20150720
  Serious: Yes (Death, Life-Threatening, Hospitalization, Other)
  Sender: FDA-Public Use
  Company Number: US-GLAXOSMITHKLINE-US2014GSK014016

PATIENT
  Age: 41 Year
  Sex: Female

DRUGS (4)
  1. TYKERB [Suspect]
     Active Substance: LAPATINIB DITOSYLATE
     Indication: BREAST CANCER METASTATIC
     Dosage: UNK, U
     Route: 065
     Dates: end: 2014
  2. TYKERB [Suspect]
     Active Substance: LAPATINIB DITOSYLATE
     Dosage: UNK
  3. DECADRON [Suspect]
     Active Substance: DEXAMETHASONE
     Indication: METASTASES TO CENTRAL NERVOUS SYSTEM
     Dosage: UNK, U
     Route: 065
     Dates: end: 2014
  4. TYKERB [Suspect]
     Active Substance: LAPATINIB DITOSYLATE
     Dosage: UNK

REACTIONS (40)
  - Disease progression [Not Recovered/Not Resolved]
  - Rash [Recovering/Resolving]
  - Interstitial lung disease [Recovering/Resolving]
  - Pyrexia [Unknown]
  - Chills [Unknown]
  - Cytomegalovirus hepatitis [Unknown]
  - Immunosuppression [Unknown]
  - Blood electrolytes abnormal [Unknown]
  - Liver function test abnormal [Unknown]
  - Abdominal distension [Not Recovered/Not Resolved]
  - Cytomegalovirus infection [Unknown]
  - Lung infiltration [Unknown]
  - Anaemia [Unknown]
  - Dyspnoea [Unknown]
  - Endotracheal intubation [Not Recovered/Not Resolved]
  - Non-cardiogenic pulmonary oedema [Unknown]
  - Urinary tract infection [Unknown]
  - Acute respiratory failure [Unknown]
  - Pneumonia [Unknown]
  - Skin ulcer [Recovering/Resolving]
  - Critical illness polyneuropathy [Unknown]
  - Thrombocytopenia [Unknown]
  - Metabolic acidosis [Recovering/Resolving]
  - Radiation pneumonitis [Unknown]
  - Tracheostomy [Unknown]
  - Sepsis [Unknown]
  - Cough [Unknown]
  - Mechanical ventilation [Not Recovered/Not Resolved]
  - Lactic acidosis [Recovering/Resolving]
  - Hypotension [Unknown]
  - Breast cancer metastatic [Fatal]
  - Hospitalisation [Not Recovered/Not Resolved]
  - Cushingoid [Unknown]
  - Peripheral swelling [Recovering/Resolving]
  - Hyponatraemia [Unknown]
  - Hepatitis [Unknown]
  - Malnutrition [Unknown]
  - Hyperglycaemia [Unknown]
  - Decreased appetite [Unknown]
  - Eating disorder [Not Recovered/Not Resolved]

NARRATIVE: CASE EVENT DATE: 2014
